FAERS Safety Report 10708874 (Version 2)
Quarter: 2015Q1

REPORT INFORMATION
  Report Type: Report from Study
  Country: US (occurrence: US)
  Receive Date: 20150113
  Receipt Date: 20150121
  Transmission Date: 20150721
  Serious: Yes (Hospitalization, Other)
  Sender: FDA-Public Use
  Company Number: US-AMGEN-USACT2015002262

PATIENT
  Age: 62 Year
  Sex: Female
  Weight: 85.45 kg

DRUGS (14)
  1. PROAIR HFA [Concomitant]
     Active Substance: ALBUTEROL SULFATE
     Dosage: 180 UG, UNK
     Dates: start: 20141017
  2. PRAVACHOL [Concomitant]
     Active Substance: PRAVASTATIN SODIUM
     Dosage: 40 MG, UNK
     Dates: start: 20140804
  3. ZOFRAN                             /00955301/ [Concomitant]
     Active Substance: ONDANSETRON HYDROCHLORIDE
     Dosage: 16 MG, UNK
     Dates: start: 20141008
  4. FOLVITE                            /00024201/ [Concomitant]
     Dosage: 1 MG, UNK
     Dates: start: 20140918
  5. CARBOPLATIN. [Concomitant]
     Active Substance: CARBOPLATIN
     Dosage: 680-750 MG, UNK
     Dates: start: 20141031, end: 20141231
  6. GLUCOPHAGE [Concomitant]
     Active Substance: METFORMIN HYDROCHLORIDE
     Dosage: 1000 MG, UNK
     Dates: start: 20140908
  7. DECADRON [Concomitant]
     Active Substance: DEXAMETHASONE
     Dosage: 4 MG, UNK
     Dates: start: 20141008
  8. LOTREL [Concomitant]
     Active Substance: AMLODIPINE BESYLATE\BENAZEPRIL HYDROCHLORIDE
     Dosage: UNK MG, UNK
     Dates: start: 20140910
  9. OSCAL 500+D [Concomitant]
     Dosage: 2500 MG, UNK
     Dates: start: 20141031
  10. COMPAZINE [Concomitant]
     Active Substance: PROCHLORPERAZINE MALEATE
     Dosage: 10 MG, UNK
     Dates: start: 20141023
  11. VITAMIN B12 [Concomitant]
     Active Substance: CYANOCOBALAMIN
     Dosage: 1000 UG, UNK
     Dates: start: 20140918
  12. DENOSUMAB [Suspect]
     Active Substance: DENOSUMAB
     Indication: NON-SMALL CELL LUNG CANCER
     Dosage: 120 MG, UNK
     Route: 065
     Dates: start: 20141031
  13. PEMETREXED [Concomitant]
     Active Substance: PEMETREXED
     Dosage: 1000 MG, UNK
     Dates: start: 20141031, end: 20141231
  14. ZYRTEC [Concomitant]
     Active Substance: CETIRIZINE HYDROCHLORIDE
     Dosage: 5 UG, UNK
     Dates: start: 20141008

REACTIONS (1)
  - Pulmonary embolism [Not Recovered/Not Resolved]

NARRATIVE: CASE EVENT DATE: 20150106
